FAERS Safety Report 14541048 (Version 3)
Quarter: 2018Q1

REPORT INFORMATION
  Report Type: Spontaneous
  Country: US (occurrence: US)
  Receive Date: 20180216
  Receipt Date: 20180319
  Transmission Date: 20180509
  Serious: No
  Sender: FDA-Public Use
  Company Number: US-GLAXOSMITHKLINE-US2018023253

PATIENT
  Age: 43 Year
  Sex: Male

DRUGS (1)
  1. NICORETTE CINNAMON SURGE [Suspect]
     Active Substance: NICOTINE
     Indication: TOBACCO ABUSE
     Dosage: UNK
     Dates: start: 20180207, end: 20180209

REACTIONS (4)
  - Product quality issue [Unknown]
  - Tongue discomfort [Unknown]
  - Oral pain [Unknown]
  - Product use in unapproved indication [Unknown]

NARRATIVE: CASE EVENT DATE: 20180208
